FAERS Safety Report 26188549 (Version 1)
Quarter: 2025Q4

REPORT INFORMATION
  Report Type: Spontaneous
  Country: EU (occurrence: EU)
  Receive Date: 20251222
  Receipt Date: 20251222
  Transmission Date: 20260118
  Serious: Yes (Hospitalization, Other)
  Sender: MERCK SHARP & DOHME LLC
  Company Number: None

PATIENT
  Age: 51 Year
  Sex: Male
  Weight: 81 kg

DRUGS (9)
  1. IVERMECTIN [Suspect]
     Active Substance: IVERMECTIN
     Indication: Echinococciasis
     Dosage: DOSE DESCRIPTION : 3 MILLIGRAM, QW?DAILY DOSE : 0.429 MILLIGRAM?REGIMEN DOSE : 6  MILLIGRAM
     Route: 048
     Dates: start: 20230926, end: 20231003
  2. ALBENDAZOLE [Suspect]
     Active Substance: ALBENDAZOLE
     Indication: Echinococciasis
     Dosage: DOSE DESCRIPTION : 800 MILLIGRAM, QD?DAILY DOSE : 800 MILLIGRAM?REGIMEN DOSE : 4800  MILLIGRAM
     Route: 048
     Dates: start: 20231003, end: 20231009
  3. KARDEGIC [Concomitant]
     Active Substance: ASPIRIN DL-LYSINE
     Dosage: DOSE DESCRIPTION : 1 DOSAGE FORM, QD?DAILY DOSE : 1 DOSAGE FORM
     Route: 048
  4. TOUJEO [Concomitant]
     Active Substance: INSULIN GLARGINE
     Dosage: TIME INTERVAL: AS NECESSARY: DOSE DESCRIPTION : 20 INTERNATIONAL UNIT, PRN
     Route: 058
     Dates: start: 20231002
  5. BISOPROLOL FUMARATE [Concomitant]
     Active Substance: BISOPROLOL FUMARATE
     Dosage: DOSE DESCRIPTION : 3.75 MILLIGRAM, QD?DAILY DOSE : 3.75 MILLIGRAM
     Route: 048
  6. HUMALOG [Concomitant]
     Active Substance: INSULIN LISPRO
     Route: 058
  7. ACETAMINOPHEN [Concomitant]
     Active Substance: ACETAMINOPHEN
     Route: 048
  8. RAMIPRIL [Concomitant]
     Active Substance: RAMIPRIL
     Dosage: DOSE DESCRIPTION : 3.7 MILLIGRAM, QD?DAILY DOSE : 3.7 MILLIGRAM
     Route: 048
  9. ATORVASTATIN [Concomitant]
     Active Substance: ATORVASTATIN
     Dosage: DOSE DESCRIPTION : 10 MILLIGRAM, QD?DAILY DOSE : 10 MILLIGRAM
     Route: 048

REACTIONS (3)
  - Overdose [Unknown]
  - Mixed liver injury [Recovering/Resolving]
  - Off label use [Unknown]

NARRATIVE: CASE EVENT DATE: 20230926
